FAERS Safety Report 4340388-3 (Version None)
Quarter: 2004Q2

REPORT INFORMATION
  Report Type: 
  Country: None (occurrence: None)
  Receive Date: 20040414
  Receipt Date: 20040406
  Transmission Date: 20050107
  Serious: Yes (Death)
  Sender: FDA-Public Use
  Company Number: 2004204457US

PATIENT
  Age: 38 Year
  Sex: Female

DRUGS (1)
  1. FRAGMIN [Suspect]
     Indication: DEEP VEIN THROMBOSIS
     Dosage: 5000 IU, QD, SUBCUTANEOUS
     Route: 058

REACTIONS (3)
  - BRAIN HERNIATION [None]
  - HAEMORRHAGE INTRACRANIAL [None]
  - RESPIRATORY ARREST [None]
